FAERS Safety Report 4788760-1 (Version None)
Quarter: 2005Q4

REPORT INFORMATION
  Report Type: 
  Country: None (occurrence: None)
  Receive Date: 20051004
  Receipt Date: 20050920
  Transmission Date: 20060501
  Serious: Yes (Death, Hospitalization)
  Sender: FDA-Public Use
  Company Number: FR_050606595

PATIENT
  Age: 59 Year
  Sex: Female
  Weight: 56 kg

DRUGS (3)
  1. GEMZAR [Suspect]
     Indication: LUNG ADENOCARCINOMA METASTATIC
     Dosage: 865 MG/M2/2 OTHER
     Dates: start: 20050506
  2. CISPLATIN [Concomitant]
  3. MORPHINE SULFATE [Concomitant]

REACTIONS (9)
  - CHRONIC OBSTRUCTIVE PULMONARY DISEASE [None]
  - DYSPNOEA [None]
  - HYPERSENSITIVITY [None]
  - LIVEDO RETICULARIS [None]
  - OXYGEN SATURATION DECREASED [None]
  - PNEUMONIA [None]
  - RASH [None]
  - RENAL FAILURE [None]
  - TACHYCARDIA [None]
